FAERS Safety Report 4696291-2 (Version None)
Quarter: 2005Q2

REPORT INFORMATION
  Report Type: 
  Country: None (occurrence: None)
  Receive Date: 20050621
  Receipt Date: 20050610
  Transmission Date: 20051028
  Serious: Yes (Disabling)
  Sender: FDA-Public Use
  Company Number: PHBS2005MX08444

PATIENT
  Age: 61 Year
  Sex: Female
  Weight: 72 kg

DRUGS (3)
  1. AREDIA [Suspect]
     Indication: METASTASES TO BONE
     Dates: start: 20000804, end: 20010401
  2. ANASTROZOLE [Concomitant]
     Dosage: 1 MG/D
     Route: 048
     Dates: start: 20021112
  3. ZOMETA [Suspect]
     Indication: METASTASES TO BONE
     Dosage: UNK, UNK
     Route: 042
     Dates: start: 20010401, end: 20040507

REACTIONS (6)
  - ASEPTIC NECROSIS BONE [None]
  - BONE GRAFT [None]
  - FAILURE OF IMPLANT [None]
  - INFECTION [None]
  - MOUTH ULCERATION [None]
  - WOUND DEBRIDEMENT [None]
